FAERS Safety Report 11450214 (Version 1)
Quarter: 2015Q3

REPORT INFORMATION
  Report Type: Spontaneous
  Country: US (occurrence: None)
  Receive Date: 20150827
  Receipt Date: 20150827
  Transmission Date: 20151125
  Serious: Yes (Disabling)
  Sender: FDA-Public Use
  Company Number: 2015AP008026

PATIENT
  Age: 48 Year
  Sex: Male

DRUGS (3)
  1. CARBIDOPA AND LEVODOPA [Suspect]
     Active Substance: CARBIDOPA\LEVODOPA
     Indication: PARKINSON^S DISEASE
     Dosage: 1 LEVODOPA 100MG/CARBIDOPA 25MG TABLET EVERY 3 HOURS, ORAL
     Route: 048
  2. RASAGILINE [Concomitant]
     Active Substance: RASAGILINE
  3. AMANTADINE [Concomitant]
     Active Substance: AMANTADINE

REACTIONS (3)
  - Dyskinesia [None]
  - On and off phenomenon [None]
  - Sleep disorder [None]
